FAERS Safety Report 7817788-X (Version None)
Quarter: 2011Q4

REPORT INFORMATION
  Report Type: 
  Country: None (occurrence: None)
  Receive Date: 20111017
  Receipt Date: 20111012
  Transmission Date: 20120403
  Serious: Yes (Death, Hospitalization)
  Sender: FDA-Public Use
  Company Number: JP-JNJFOC-20091203664

PATIENT
  Sex: Female
  Weight: 47 kg

DRUGS (22)
  1. KENALOG [Concomitant]
     Indication: PROPHYLAXIS
     Route: 049
     Dates: start: 20091006
  2. LOBU [Concomitant]
     Route: 048
  3. LEVOFLOXACIN [Concomitant]
     Indication: PYREXIA
     Route: 048
     Dates: start: 20090927, end: 20091001
  4. SELBEX [Concomitant]
     Indication: GASTRITIS
     Route: 048
     Dates: start: 20091006
  5. SELBEX [Concomitant]
     Route: 048
  6. AFTACH [Concomitant]
     Indication: PROPHYLAXIS
     Route: 049
     Dates: start: 20091008, end: 20100211
  7. NEUROVITAN [Concomitant]
     Indication: PROPHYLAXIS
     Route: 048
     Dates: start: 20090918, end: 20100211
  8. DOXORUBICIN HCL [Suspect]
     Dosage: CYCLE 1
     Route: 042
     Dates: start: 20090918, end: 20090918
  9. DOXORUBICIN HCL [Suspect]
     Dosage: CYCLE 4
     Route: 042
     Dates: start: 20091215, end: 20091215
  10. AFTACH [Concomitant]
     Indication: STOMATITIS
     Route: 049
     Dates: start: 20091008, end: 20100211
  11. POVIDONE IODINE [Concomitant]
     Indication: STOMATITIS
     Route: 049
     Dates: start: 20091007, end: 20100211
  12. DOXORUBICIN HCL [Suspect]
     Indication: OVARIAN CANCER RECURRENT
     Dosage: CYCLE 5
     Route: 042
     Dates: start: 20100112, end: 20100112
  13. FAMOTIDINE [Concomitant]
     Indication: PROPHYLAXIS
     Route: 048
     Dates: start: 20091006
  14. LOBU [Concomitant]
     Indication: PROPHYLAXIS
     Route: 048
     Dates: start: 20091006
  15. POVIDONE IODINE [Concomitant]
     Indication: PROPHYLAXIS
     Route: 049
     Dates: start: 20091007, end: 20100211
  16. DOXORUBICIN HCL [Suspect]
     Dosage: CYCLE 2
     Route: 042
     Dates: start: 20091020, end: 20091020
  17. HEPARIN [Concomitant]
     Indication: PROPHYLAXIS
     Route: 061
     Dates: start: 20090918, end: 20100211
  18. KENALOG [Concomitant]
     Indication: STOMATITIS
     Route: 049
     Dates: start: 20091006
  19. DOXORUBICIN HCL [Suspect]
     Dosage: CYCLE 3
     Route: 042
     Dates: start: 20091117, end: 20091117
  20. RAMELTEON [Concomitant]
     Indication: PROPHYLAXIS
     Route: 048
     Dates: start: 20090918, end: 20100211
  21. SODIUM BICARBONATE [Concomitant]
     Indication: PROPHYLAXIS
     Route: 049
     Dates: start: 20090918
  22. SODIUM BICARBONATE [Concomitant]
     Route: 065

REACTIONS (4)
  - WHITE BLOOD CELL COUNT DECREASED [None]
  - INTERSTITIAL LUNG DISEASE [None]
  - OVARIAN CANCER RECURRENT [None]
  - NEUTROPENIA [None]
